FAERS Safety Report 7040451-2 (Version None)
Quarter: 2010Q4

REPORT INFORMATION
  Report Type: 
  Country: None (occurrence: None)
  Receive Date: 20101012
  Receipt Date: 20101005
  Transmission Date: 20110411
  Serious: Yes (Other)
  Sender: FDA-Public Use
  Company Number: US-AMGEN-QUU443477

PATIENT
  Sex: Female

DRUGS (2)
  1. NPLATE [Suspect]
     Indication: IDIOPATHIC THROMBOCYTOPENIC PURPURA
     Dates: start: 20100707, end: 20100804
  2. CORTICOSTEROIDS [Concomitant]
     Dates: start: 20100608

REACTIONS (4)
  - CEREBROVASCULAR ACCIDENT [None]
  - RENAL INFARCT [None]
  - SPLENIC INFARCTION [None]
  - TRANSIENT ISCHAEMIC ATTACK [None]
